FAERS Safety Report 24281101 (Version 1)
Quarter: 2024Q3

REPORT INFORMATION
  Report Type: Spontaneous
  Country: US (occurrence: US)
  Receive Date: 20240904
  Receipt Date: 20240904
  Transmission Date: 20241017
  Serious: No
  Sender: JOHNSON AND JOHNSON
  Company Number: US-JNJFOC-20240900659

PATIENT
  Age: 56 Year
  Sex: Male

DRUGS (1)
  1. MENS ROGAINE EXTRA STRENGTH [Suspect]
     Active Substance: MINOXIDIL
     Indication: Alopecia
     Dosage: AS DIRECTED THE CAPFUL AMOUNT AS DIRECTED 2 TIMES PER DAY
     Route: 061

REACTIONS (2)
  - Dandruff [Recovering/Resolving]
  - Application site erythema [Recovering/Resolving]

NARRATIVE: CASE EVENT DATE: 20240501
